FAERS Safety Report 19228853 (Version 1)
Quarter: 2021Q2

REPORT INFORMATION
  Report Type: Report from Study
  Country: US (occurrence: US)
  Receive Date: 20210507
  Receipt Date: 20210507
  Transmission Date: 20210717
  Serious: No
  Sender: FDA-Public Use
  Company Number: US-ACADIA PHARMACEUTICALS INC.-ACA-2021-PIM-001375

PATIENT
  Sex: Female

DRUGS (3)
  1. ZYRTEC?D 12HR [Concomitant]
     Dosage: 5 MG?120MG
  2. NUPLAZID [Suspect]
     Active Substance: PIMAVANSERIN TARTRATE
     Indication: PARKINSON^S DISEASE
     Dosage: 34 MILLIGRAM, QD
     Route: 048
     Dates: start: 202012, end: 202103
  3. ZINC. [Concomitant]
     Active Substance: ZINC
     Dosage: 15 66 MG

REACTIONS (1)
  - Hypophagia [Unknown]
